FAERS Safety Report 16889487 (Version 1)
Quarter: 2019Q4

REPORT INFORMATION
  Report Type: Spontaneous
  Country: US (occurrence: US)
  Receive Date: 20190811
  Receipt Date: 20190811
  Transmission Date: 20200122
  Serious: No
  Sender: FDA-Public Use
  Company Number: None

PATIENT
  Age: 74 Year
  Sex: Female

DRUGS (1)
  1. TREMFYA [Suspect]
     Active Substance: GUSELKUMAB
     Indication: PSORIATIC ARTHROPATHY
     Dosage: EVERY 8 WEEKS
     Route: 058
     Dates: start: 20190312

REACTIONS (2)
  - Inappropriate schedule of product administration [None]
  - Therapeutic product effect decreased [None]

NARRATIVE: CASE EVENT DATE: 201908
